FAERS Safety Report 19396841 (Version 4)
Quarter: 2021Q3

REPORT INFORMATION
  Report Type: Spontaneous
  Country: US (occurrence: US)
  Receive Date: 20210610
  Receipt Date: 20210820
  Transmission Date: 20211014
  Serious: No
  Sender: FDA-Public Use
  Company Number: US-ELI_LILLY_AND_COMPANY-US202106002380

PATIENT
  Age: 60 Year
  Sex: Female

DRUGS (125)
  1. HUMULIN R U?500 [Suspect]
     Active Substance: INSULIN HUMAN
     Indication: TYPE 2 DIABETES MELLITUS
     Dosage: 65 U, EACH MORNING
     Route: 058
     Dates: start: 2020
  2. HUMULIN R U?500 [Suspect]
     Active Substance: INSULIN HUMAN
     Indication: TYPE 2 DIABETES MELLITUS
     Dosage: 65 U, EACH MORNING
     Route: 058
     Dates: start: 2020
  3. HUMULIN R U?500 [Suspect]
     Active Substance: INSULIN HUMAN
     Dosage: 25 U, DAILY (NOON)
     Route: 058
     Dates: start: 2020
  4. HUMULIN R U?500 [Suspect]
     Active Substance: INSULIN HUMAN
     Dosage: 25 U, DAILY (NOON)
     Route: 058
     Dates: start: 2020
  5. HUMULIN R U?500 [Suspect]
     Active Substance: INSULIN HUMAN
     Dosage: 65 U, EACH MORNING
     Route: 058
  6. HUMULIN R U?500 [Suspect]
     Active Substance: INSULIN HUMAN
     Dosage: 25 U, DAILY (NOON)
     Route: 058
  7. HUMULIN R U?500 [Suspect]
     Active Substance: INSULIN HUMAN
     Dosage: 25 U, DAILY (NOON)
     Route: 058
  8. HUMULIN R U?500 [Suspect]
     Active Substance: INSULIN HUMAN
     Dosage: 25 U, DAILY (NOON)
     Route: 058
  9. HUMULIN R U?500 [Suspect]
     Active Substance: INSULIN HUMAN
     Dosage: 25 U, EACH EVENING
     Route: 058
  10. HUMULIN R U?500 [Suspect]
     Active Substance: INSULIN HUMAN
     Dosage: UNK UNK, UNKNOWN
     Route: 058
  11. HUMULIN R U?500 [Suspect]
     Active Substance: INSULIN HUMAN
     Dosage: 80 U, BEFORE BREAKFAST
     Route: 058
  12. HUMULIN R U?500 [Suspect]
     Active Substance: INSULIN HUMAN
     Dosage: 25 U, BEFORE LUNCH
     Route: 058
  13. HUMULIN R U?500 [Suspect]
     Active Substance: INSULIN HUMAN
     Dosage: 80 U, BEFORE BREAKFAST
     Route: 058
  14. HUMULIN R U?500 [Suspect]
     Active Substance: INSULIN HUMAN
     Dosage: 80 U, BEFORE BREAKFAST
     Route: 058
  15. HUMULIN R U?500 [Suspect]
     Active Substance: INSULIN HUMAN
     Dosage: 25 U, BEFORE LUNCH
     Route: 058
  16. HUMULIN R U?500 [Suspect]
     Active Substance: INSULIN HUMAN
     Dosage: 40 U, BEFORE DINNER
     Route: 058
  17. HUMALOG [Suspect]
     Active Substance: INSULIN LISPRO
     Indication: PRODUCT USED FOR UNKNOWN INDICATION
     Dosage: UNK UNK, UNKNOWN
     Route: 065
  18. HUMULIN R U?500 [Suspect]
     Active Substance: INSULIN HUMAN
     Indication: TYPE 2 DIABETES MELLITUS
     Dosage: 65 U, EACH MORNING
     Route: 058
     Dates: start: 2020
  19. HUMULIN R U?500 [Suspect]
     Active Substance: INSULIN HUMAN
     Dosage: 65 U, EACH MORNING
     Route: 058
  20. HUMULIN R U?500 [Suspect]
     Active Substance: INSULIN HUMAN
     Dosage: 65 U, EACH MORNING
     Route: 058
  21. HUMULIN R U?500 [Suspect]
     Active Substance: INSULIN HUMAN
     Dosage: 25 U, DAILY (NOON)
     Route: 058
  22. HUMULIN R U?500 [Suspect]
     Active Substance: INSULIN HUMAN
     Dosage: 25 U, DAILY (NOON)
     Route: 058
  23. HUMULIN R U?500 [Suspect]
     Active Substance: INSULIN HUMAN
     Dosage: 25 U, EACH EVENING
     Route: 058
  24. HUMULIN R U?500 [Suspect]
     Active Substance: INSULIN HUMAN
     Dosage: 65 U, EACH MORNING
     Route: 058
  25. HUMULIN R U?500 [Suspect]
     Active Substance: INSULIN HUMAN
     Dosage: 25 U, DAILY (NOON)
     Route: 058
  26. HUMULIN R U?500 [Suspect]
     Active Substance: INSULIN HUMAN
     Dosage: UNK UNK, UNKNOWN
     Route: 058
  27. HUMULIN R U?500 [Suspect]
     Active Substance: INSULIN HUMAN
     Dosage: 80 U, EACH MORNING
     Route: 058
  28. HUMULIN R U?500 [Suspect]
     Active Substance: INSULIN HUMAN
     Dosage: 25 U, DAILY (NOON)
     Route: 058
  29. HUMULIN R U?500 [Suspect]
     Active Substance: INSULIN HUMAN
     Dosage: 80 U, BEFORE BREAKFAST
     Route: 058
  30. HUMULIN R U?500 [Suspect]
     Active Substance: INSULIN HUMAN
     Dosage: 25 U, BEFORE LUNCH
     Route: 058
  31. HUMULIN R U?500 [Suspect]
     Active Substance: INSULIN HUMAN
     Dosage: 40 U, BEFORE DINNER
     Route: 058
  32. HUMULIN R U?500 [Suspect]
     Active Substance: INSULIN HUMAN
     Dosage: 40 U, BEFORE DINNER
     Route: 058
  33. HUMULIN R U?500 [Suspect]
     Active Substance: INSULIN HUMAN
     Dosage: 25 U, DAILY (NOON)
     Route: 058
     Dates: start: 2020
  34. HUMULIN R U?500 [Suspect]
     Active Substance: INSULIN HUMAN
     Dosage: 25 U, EACH EVENING
     Route: 058
     Dates: start: 2020
  35. HUMULIN R U?500 [Suspect]
     Active Substance: INSULIN HUMAN
     Dosage: 25 U, EACH EVENING
     Route: 058
     Dates: start: 2020
  36. HUMULIN R U?500 [Suspect]
     Active Substance: INSULIN HUMAN
     Dosage: 25 U, EACH EVENING
     Route: 058
     Dates: start: 2020
  37. HUMULIN R U?500 [Suspect]
     Active Substance: INSULIN HUMAN
     Dosage: 65 U, EACH MORNING
     Route: 058
  38. HUMULIN R U?500 [Suspect]
     Active Substance: INSULIN HUMAN
     Dosage: 25 U, DAILY (NOON)
     Route: 058
  39. HUMULIN R U?500 [Suspect]
     Active Substance: INSULIN HUMAN
     Dosage: 25 U, EACH EVENING
     Route: 058
  40. HUMULIN R U?500 [Suspect]
     Active Substance: INSULIN HUMAN
     Dosage: UNK UNK, UNKNOWN
     Route: 058
  41. HUMULIN R U?500 [Suspect]
     Active Substance: INSULIN HUMAN
     Dosage: UNK UNK, UNKNOWN
     Route: 058
  42. HUMULIN R U?500 [Suspect]
     Active Substance: INSULIN HUMAN
     Dosage: 80 U, EACH MORNING
     Route: 058
  43. HUMULIN R U?500 [Suspect]
     Active Substance: INSULIN HUMAN
     Dosage: 80 U, EACH MORNING
     Route: 058
  44. HUMULIN R U?500 [Suspect]
     Active Substance: INSULIN HUMAN
     Dosage: 40 U, BEFORE DINNER
     Route: 058
  45. HUMULIN R U?500 [Suspect]
     Active Substance: INSULIN HUMAN
     Dosage: 80 U, BEFORE BREAKFAST
     Route: 058
  46. HUMULIN R U?500 [Suspect]
     Active Substance: INSULIN HUMAN
     Dosage: 25 U, BEFORE LUNCH
     Route: 058
  47. HUMULIN R U?500 [Suspect]
     Active Substance: INSULIN HUMAN
     Dosage: 40 U, BEFORE DINNER
     Route: 058
  48. HUMULIN R U?500 [Suspect]
     Active Substance: INSULIN HUMAN
     Indication: TYPE 2 DIABETES MELLITUS
     Dosage: 65 U, EACH MORNING
     Route: 058
     Dates: start: 2020
  49. HUMULIN R U?500 [Suspect]
     Active Substance: INSULIN HUMAN
     Dosage: 25 U, DAILY (NOON)
     Route: 058
     Dates: start: 2020
  50. HUMULIN R U?500 [Suspect]
     Active Substance: INSULIN HUMAN
     Dosage: 25 U, DAILY (NOON)
     Route: 058
     Dates: start: 2020
  51. HUMULIN R U?500 [Suspect]
     Active Substance: INSULIN HUMAN
     Dosage: 25 U, EACH EVENING
     Route: 058
     Dates: start: 2020
  52. HUMULIN R U?500 [Suspect]
     Active Substance: INSULIN HUMAN
     Dosage: 25 U, EACH EVENING
     Route: 058
     Dates: start: 2020
  53. HUMULIN R U?500 [Suspect]
     Active Substance: INSULIN HUMAN
     Dosage: 25 U, DAILY (NOON)
     Route: 058
  54. HUMULIN R U?500 [Suspect]
     Active Substance: INSULIN HUMAN
     Dosage: 25 U, EACH EVENING
     Route: 058
  55. HUMULIN R U?500 [Suspect]
     Active Substance: INSULIN HUMAN
     Dosage: 25 U, EACH EVENING
     Route: 058
  56. HUMULIN R U?500 [Suspect]
     Active Substance: INSULIN HUMAN
     Dosage: 25 U, EACH EVENING
     Route: 058
  57. HUMULIN R U?500 [Suspect]
     Active Substance: INSULIN HUMAN
     Dosage: 25 U, EACH EVENING
     Route: 058
  58. HUMULIN R U?500 [Suspect]
     Active Substance: INSULIN HUMAN
     Dosage: 65 U, EACH MORNING
     Route: 058
  59. HUMULIN R U?500 [Suspect]
     Active Substance: INSULIN HUMAN
     Dosage: 80 U, EACH MORNING
     Route: 058
  60. HUMULIN R U?500 [Suspect]
     Active Substance: INSULIN HUMAN
     Dosage: 80 U, EACH MORNING
     Route: 058
  61. HUMULIN R U?500 [Suspect]
     Active Substance: INSULIN HUMAN
     Dosage: 25 U, DAILY (NOON)
     Route: 058
  62. HUMULIN R U?500 [Suspect]
     Active Substance: INSULIN HUMAN
     Dosage: 30 U, EACH EVENING (30?35)
     Route: 058
  63. HUMULIN R U?500 [Suspect]
     Active Substance: INSULIN HUMAN
     Dosage: 80 U, BEFORE BREAKFAST
     Route: 058
  64. HUMULIN R U?500 [Suspect]
     Active Substance: INSULIN HUMAN
     Dosage: 80 U, BEFORE BREAKFAST
     Route: 058
  65. HUMULIN R U?500 [Suspect]
     Active Substance: INSULIN HUMAN
     Dosage: 40 U, BEFORE DINNER
     Route: 058
  66. HUMULIN R U?500 [Suspect]
     Active Substance: INSULIN HUMAN
     Dosage: 40 U, BEFORE DINNER
     Route: 058
  67. HUMULIN R U?500 [Suspect]
     Active Substance: INSULIN HUMAN
     Dosage: 40 U, BEFORE DINNER
     Route: 058
  68. HUMULIN R U?500 [Suspect]
     Active Substance: INSULIN HUMAN
     Dosage: 25 U, BEFORE LUNCH
     Route: 058
  69. HUMULIN R U?500 [Suspect]
     Active Substance: INSULIN HUMAN
     Dosage: 25 U, BEFORE LUNCH
     Route: 058
  70. HUMULIN R U?500 [Suspect]
     Active Substance: INSULIN HUMAN
     Indication: TYPE 2 DIABETES MELLITUS
     Dosage: 65 U, EACH MORNING
     Route: 058
     Dates: start: 2020
  71. HUMULIN R U?500 [Suspect]
     Active Substance: INSULIN HUMAN
     Dosage: 25 U, DAILY (NOON)
     Route: 058
     Dates: start: 2020
  72. HUMULIN R U?500 [Suspect]
     Active Substance: INSULIN HUMAN
     Dosage: 65 U, EACH MORNING
     Route: 058
  73. HUMULIN R U?500 [Suspect]
     Active Substance: INSULIN HUMAN
     Dosage: 25 U, DAILY (NOON)
     Route: 058
  74. HUMULIN R U?500 [Suspect]
     Active Substance: INSULIN HUMAN
     Dosage: 65 U, EACH MORNING
     Route: 058
  75. HUMULIN R U?500 [Suspect]
     Active Substance: INSULIN HUMAN
     Dosage: 65 U, EACH MORNING
     Route: 058
  76. HUMULIN R U?500 [Suspect]
     Active Substance: INSULIN HUMAN
     Dosage: 25 U, DAILY (NOON)
     Route: 058
  77. HUMULIN R U?500 [Suspect]
     Active Substance: INSULIN HUMAN
     Dosage: 30 U, EACH EVENING (30?35)
     Route: 058
  78. HUMULIN R U?500 [Suspect]
     Active Substance: INSULIN HUMAN
     Dosage: 80 U, BEFORE BREAKFAST
     Route: 058
  79. HUMULIN R U?500 [Suspect]
     Active Substance: INSULIN HUMAN
     Dosage: 80 U, BEFORE BREAKFAST
     Route: 058
  80. HUMULIN R U?500 [Suspect]
     Active Substance: INSULIN HUMAN
     Dosage: 25 U, BEFORE LUNCH
     Route: 058
  81. HUMULIN R U?500 [Suspect]
     Active Substance: INSULIN HUMAN
     Dosage: 25 U, BEFORE LUNCH
     Route: 058
  82. HUMULIN R U?500 [Suspect]
     Active Substance: INSULIN HUMAN
     Dosage: 40 U, BEFORE DINNER
     Route: 058
  83. HUMULIN R U?500 [Suspect]
     Active Substance: INSULIN HUMAN
     Dosage: 40 U, BEFORE DINNER
     Route: 058
  84. HUMULIN R U?500 [Suspect]
     Active Substance: INSULIN HUMAN
     Dosage: 25 U, BEFORE LUNCH
     Route: 058
  85. JARDIANCE [Concomitant]
     Active Substance: EMPAGLIFLOZIN
     Indication: DIABETES MELLITUS
  86. HUMULIN R U?500 [Suspect]
     Active Substance: INSULIN HUMAN
     Indication: TYPE 2 DIABETES MELLITUS
     Dosage: 65 U, EACH MORNING
     Route: 058
     Dates: start: 2020
  87. HUMULIN R U?500 [Suspect]
     Active Substance: INSULIN HUMAN
     Dosage: 25 U, DAILY (NOON)
     Route: 058
     Dates: start: 2020
  88. HUMULIN R U?500 [Suspect]
     Active Substance: INSULIN HUMAN
     Dosage: 25 U, EACH EVENING
     Route: 058
     Dates: start: 2020
  89. HUMULIN R U?500 [Suspect]
     Active Substance: INSULIN HUMAN
     Dosage: 25 U, EACH EVENING
     Route: 058
  90. HUMULIN R U?500 [Suspect]
     Active Substance: INSULIN HUMAN
     Dosage: 25 U, DAILY (NOON)
     Route: 058
  91. HUMULIN R U?500 [Suspect]
     Active Substance: INSULIN HUMAN
     Dosage: 80 U, EACH MORNING
     Route: 058
  92. HUMULIN R U?500 [Suspect]
     Active Substance: INSULIN HUMAN
     Dosage: 25 U, DAILY (NOON)
     Route: 058
  93. HUMULIN R U?500 [Suspect]
     Active Substance: INSULIN HUMAN
     Dosage: 30 U, EACH EVENING (30?35)
     Route: 058
  94. HUMULIN R U?500 [Suspect]
     Active Substance: INSULIN HUMAN
     Dosage: 80 U, BEFORE BREAKFAST
     Route: 058
  95. HUMULIN R U?500 [Suspect]
     Active Substance: INSULIN HUMAN
     Dosage: 25 U, BEFORE LUNCH
     Route: 058
  96. HUMULIN R U?500 [Suspect]
     Active Substance: INSULIN HUMAN
     Dosage: 25 U, BEFORE LUNCH
     Route: 058
  97. HUMULIN R U?500 [Suspect]
     Active Substance: INSULIN HUMAN
     Dosage: 25 U, BEFORE LUNCH
     Route: 058
  98. HUMULIN R U?500 [Suspect]
     Active Substance: INSULIN HUMAN
     Dosage: 80 U, BEFORE BREAKFAST
     Route: 058
  99. HUMULIN R U?500 [Suspect]
     Active Substance: INSULIN HUMAN
     Dosage: 80 U, BEFORE BREAKFAST
     Route: 058
  100. HUMULIN R U?500 [Suspect]
     Active Substance: INSULIN HUMAN
     Dosage: 40 U, BEFORE DINNER
     Route: 058
  101. METFORMIN [Concomitant]
     Active Substance: METFORMIN HYDROCHLORIDE
     Indication: DIABETES MELLITUS
  102. HUMULIN R U?500 [Suspect]
     Active Substance: INSULIN HUMAN
     Indication: TYPE 2 DIABETES MELLITUS
     Dosage: 65 U, EACH MORNING
     Route: 058
     Dates: start: 2020
  103. HUMULIN R U?500 [Suspect]
     Active Substance: INSULIN HUMAN
     Dosage: 25 U, DAILY (NOON)
     Route: 058
     Dates: start: 2020
  104. HUMULIN R U?500 [Suspect]
     Active Substance: INSULIN HUMAN
     Dosage: 25 U, EACH EVENING
     Route: 058
     Dates: start: 2020
  105. HUMULIN R U?500 [Suspect]
     Active Substance: INSULIN HUMAN
     Dosage: 65 U, EACH MORNING
     Route: 058
  106. HUMULIN R U?500 [Suspect]
     Active Substance: INSULIN HUMAN
     Dosage: 65 U, EACH MORNING
     Route: 058
  107. HUMULIN R U?500 [Suspect]
     Active Substance: INSULIN HUMAN
     Dosage: 25 U, DAILY (NOON)
     Route: 058
  108. HUMULIN R U?500 [Suspect]
     Active Substance: INSULIN HUMAN
     Dosage: UNK UNK, UNKNOWN
     Route: 058
  109. HUMULIN R U?500 [Suspect]
     Active Substance: INSULIN HUMAN
     Dosage: UNK UNK, UNKNOWN
     Route: 058
  110. HUMULIN R U?500 [Suspect]
     Active Substance: INSULIN HUMAN
     Dosage: UNK UNK, UNKNOWN
     Route: 058
  111. HUMULIN R U?500 [Suspect]
     Active Substance: INSULIN HUMAN
     Dosage: 25 U, DAILY (NOON)
     Route: 058
  112. HUMULIN R U?500 [Suspect]
     Active Substance: INSULIN HUMAN
     Dosage: 25 U, DAILY (NOON)
     Route: 058
  113. HUMULIN R U?500 [Suspect]
     Active Substance: INSULIN HUMAN
     Dosage: 30 U, EACH EVENING (30?35)
     Route: 058
  114. HUMULIN R U?500 [Suspect]
     Active Substance: INSULIN HUMAN
     Dosage: 30 U, EACH EVENING (30?35)
     Route: 058
  115. HUMULIN R U?500 [Suspect]
     Active Substance: INSULIN HUMAN
     Dosage: 30 U, EACH EVENING (30?35)
     Route: 058
  116. HUMULIN R U?500 [Suspect]
     Active Substance: INSULIN HUMAN
     Dosage: 80 U, BEFORE BREAKFAST
     Route: 058
  117. HUMULIN R U?500 [Suspect]
     Active Substance: INSULIN HUMAN
     Dosage: 25 U, BEFORE LUNCH
     Route: 058
  118. HUMULIN R U?500 [Suspect]
     Active Substance: INSULIN HUMAN
     Dosage: 40 U, BEFORE DINNER
     Route: 058
  119. HUMULIN R U?500 [Suspect]
     Active Substance: INSULIN HUMAN
     Indication: TYPE 2 DIABETES MELLITUS
     Dosage: 65 U, EACH MORNING
     Route: 058
     Dates: start: 2020
  120. HUMULIN R U?500 [Suspect]
     Active Substance: INSULIN HUMAN
     Dosage: 25 U, EACH EVENING
     Route: 058
     Dates: start: 2020
  121. HUMULIN R U?500 [Suspect]
     Active Substance: INSULIN HUMAN
     Dosage: 25 U, EACH EVENING
     Route: 058
  122. HUMULIN R U?500 [Suspect]
     Active Substance: INSULIN HUMAN
     Dosage: 25 U, EACH EVENING
     Route: 058
  123. HUMULIN R U?500 [Suspect]
     Active Substance: INSULIN HUMAN
     Dosage: 25 U, EACH EVENING
     Route: 058
  124. HUMULIN R U?500 [Suspect]
     Active Substance: INSULIN HUMAN
     Dosage: UNK UNK, UNKNOWN
     Route: 058
  125. HUMULIN R U?500 [Suspect]
     Active Substance: INSULIN HUMAN
     Dosage: 40 U, BEFORE DINNER
     Route: 058

REACTIONS (5)
  - Memory impairment [Recovering/Resolving]
  - Asthma [Recovering/Resolving]
  - Blood glucose increased [Recovering/Resolving]
  - Injection site haemorrhage [Recovering/Resolving]
  - Wrong technique in product usage process [Recovered/Resolved]

NARRATIVE: CASE EVENT DATE: 202105
